FAERS Safety Report 14774198 (Version 1)
Quarter: 2018Q2

REPORT INFORMATION
  Report Type: Spontaneous
  Country: FR (occurrence: FR)
  Receive Date: 20180418
  Receipt Date: 20180418
  Transmission Date: 20180711
  Serious: Yes (Hospitalization, Other)
  Sender: FDA-Public Use
  Company Number: FR-MERCK KGAA-2045939

PATIENT
  Age: 44 Year
  Sex: Female

DRUGS (1)
  1. NOVOTHYROX [Suspect]
     Active Substance: LEVOTHYROXINE SODIUM
     Indication: PRODUCT USED FOR UNKNOWN INDICATION
     Dates: start: 201705

REACTIONS (17)
  - Abdominal pain upper [None]
  - Limb discomfort [None]
  - Alopecia [None]
  - Musculoskeletal stiffness [None]
  - Myalgia [None]
  - Blood thyroid stimulating hormone increased [None]
  - Dyspnoea [None]
  - Movement disorder [None]
  - Haematocrit decreased [None]
  - Gait disturbance [None]
  - White blood cell count increased [None]
  - Muscle spasms [None]
  - Pain in extremity [None]
  - Fatigue [None]
  - Fear of disease [None]
  - Haemoglobin decreased [None]
  - Lymphocyte count increased [None]

NARRATIVE: CASE EVENT DATE: 2017
